FAERS Safety Report 7954158-8 (Version None)
Quarter: 2011Q4

REPORT INFORMATION
  Report Type: 
  Country: None (occurrence: None)
  Receive Date: 20111129
  Receipt Date: 20110824
  Transmission Date: 20120403
  Serious: No
  Sender: FDA-Public Use
  Company Number: USA/USA/11/0020830

PATIENT
  Age: 78 Year
  Sex: Male

DRUGS (9)
  1. SAW PALMETTO [Concomitant]
  2. ASCORBIC ACID [Concomitant]
  3. PROSTATE 2.2 SUPPLEMENT [Concomitant]
  4. ACTOS [Concomitant]
  5. LIPITOR [Concomitant]
  6. RAMIPRIL 10 MG (RAMIPRIL) [Concomitant]
  7. ASPIRIN [Concomitant]
  8. GLIMEPIRIDE [Suspect]
     Indication: TYPE 2 DIABETES MELLITUS
     Dosage: 2 MG, DAILY BEFORE DINNER, ORAL
     Route: 048
     Dates: start: 20110101
  9. JANUMET [Concomitant]

REACTIONS (3)
  - RASH PRURITIC [None]
  - RASH [None]
  - BLISTER [None]
